FAERS Safety Report 8149635-3 (Version None)
Quarter: 2012Q1

REPORT INFORMATION
  Report Type: 
  Country: None (occurrence: None)
  Receive Date: 20120218
  Receipt Date: 20111104
  Transmission Date: 20120608
  Serious: No
  Sender: FDA-Public Use
  Company Number: US-ALLERGAN-1114559US

PATIENT
  Age: 40 Year
  Sex: Female

DRUGS (1)
  1. BOTOX COSMETIC [Suspect]
     Indication: SKIN WRINKLING
     Dosage: UNK
     Route: 030
     Dates: start: 20111026, end: 20111026

REACTIONS (4)
  - VISUAL IMPAIRMENT [None]
  - CUTIS LAXA [None]
  - FACIAL PARESIS [None]
  - MYDRIASIS [None]
